FAERS Safety Report 17030739 (Version 2)
Quarter: 2019Q4

REPORT INFORMATION
  Report Type: Report from Study
  Country: US (occurrence: HU)
  Receive Date: 20191114
  Receipt Date: 20191204
  Transmission Date: 20200122
  Serious: No
  Sender: FDA-Public Use
  Company Number: US-SUNOVION-2019SUN004901

PATIENT

DRUGS (3)
  1. RETAFYLLIN [Concomitant]
     Active Substance: THEOPHYLLINE
     Dosage: 500 OT (1?1/3/DAY)
     Route: 065
  2. INDACATEROL AND GLYCOPYRROLATE [Suspect]
     Active Substance: GLYCOPYRROLATE\INDACATEROL MALEATE
     Indication: CHRONIC OBSTRUCTIVE PULMONARY DISEASE
     Dosage: UNK
     Route: 065
     Dates: start: 20190416, end: 2019
  3. RETAFYLLIN [Concomitant]
     Active Substance: THEOPHYLLINE
     Indication: PRODUCT USED FOR UNKNOWN INDICATION
     Dosage: 200 OT
     Route: 065

REACTIONS (2)
  - Emphysema [Unknown]
  - Dyspnoea [Unknown]
